FAERS Safety Report 5526674-X (Version None)
Quarter: 2007Q4

REPORT INFORMATION
  Report Type: 
  Country: None (occurrence: None)
  Receive Date: 20071127
  Receipt Date: 20071116
  Transmission Date: 20080405
  Serious: Yes (Death)
  Sender: FDA-Public Use
  Company Number: CA-JNJFOC-20071106823

PATIENT

DRUGS (5)
  1. FENTANYL [Suspect]
     Indication: PAIN IN EXTREMITY
     Route: 062
  2. FENTANYL [Suspect]
     Indication: BACK PAIN
     Route: 062
  3. ACETAMINOPHEN AND CODEINE PHOSPHATE [Suspect]
     Indication: DRUG USE FOR UNKNOWN INDICATION
     Dosage: AS-NEEDED BASIS TO A MAXIMUM OF 480 MG CODEINE PER DAY
     Route: 065
  4. HYDROMORPHONE HCL [Suspect]
     Indication: DRUG USE FOR UNKNOWN INDICATION
     Dosage: 2-4MG EVERY 4 HOURS AS NEEDED
     Route: 048
  5. KETOROLAC [Concomitant]
     Route: 042

REACTIONS (2)
  - CONFUSIONAL STATE [None]
  - DEATH [None]
